FAERS Safety Report 6465419-6 (Version None)
Quarter: 2009Q4

REPORT INFORMATION
  Report Type: 
  Country: None (occurrence: None)
  Receive Date: 20091201
  Receipt Date: 20090811
  Transmission Date: 20100525
  Serious: No
  Sender: FDA-Public Use
  Company Number: US-AMGEN-KDL305595

PATIENT
  Sex: Female
  Weight: 96.2 kg

DRUGS (3)
  1. ENBREL [Suspect]
     Indication: PSORIATIC ARTHROPATHY
     Route: 058
     Dates: start: 20080313
  2. IMURAN [Concomitant]
  3. ULTRAM [Concomitant]

REACTIONS (3)
  - DRY SKIN [None]
  - HEPATIC ENZYME INCREASED [None]
  - PSORIASIS [None]
